FAERS Safety Report 14393388 (Version 2)
Quarter: 2018Q1

REPORT INFORMATION
  Report Type: Report from Study
  Country: None (occurrence: US)
  Receive Date: 20180116
  Receipt Date: 20180205
  Transmission Date: 20180509
  Serious: Yes (Hospitalization)
  Sender: FDA-Public Use
  Company Number: US-VIFOR (INTERNATIONAL) INC.-VIT-2018-00614

PATIENT
  Age: 78 Year
  Sex: Male
  Weight: 105.33 kg

DRUGS (11)
  1. GABAPENTIN. [Concomitant]
     Active Substance: GABAPENTIN
  2. VELTASSA [Suspect]
     Active Substance: PATIROMER
     Indication: HYPERKALAEMIA
     Route: 048
     Dates: start: 20170419
  3. BUDESONIDE. [Concomitant]
     Active Substance: BUDESONIDE
     Dosage: 0.5MGS/ 2ML SUSPENSION
  4. ALLOPURINOL. [Concomitant]
     Active Substance: ALLOPURINOL
  5. IRON [Concomitant]
     Active Substance: IRON
     Dosage: 325
  6. MAGNESIUM [Concomitant]
     Active Substance: MAGNESIUM
  7. ACETYLSALICYLIC ACID [Concomitant]
     Active Substance: ASPIRIN
  8. ATENOLOL. [Concomitant]
     Active Substance: ATENOLOL
  9. FOLIC ACID. [Concomitant]
     Active Substance: FOLIC ACID
  10. GLIPIZIDE. [Concomitant]
     Active Substance: GLIPIZIDE
  11. BUMEX [Concomitant]
     Active Substance: BUMETANIDE

REACTIONS (1)
  - Hallucination [Recovered/Resolved]

NARRATIVE: CASE EVENT DATE: 20180107
